FAERS Safety Report 5760133-4 (Version None)
Quarter: 2008Q2

REPORT INFORMATION
  Report Type: 
  Country: None (occurrence: None)
  Receive Date: 20080605
  Receipt Date: 20080509
  Transmission Date: 20081010
  Serious: No
  Sender: FDA-Public Use
  Company Number: US-BOEHRINGER INGELHEIM GMBH, GERMANY-2008-BP-07344BP

PATIENT
  Sex: Male

DRUGS (7)
  1. FLOMAX [Suspect]
     Route: 048
     Dates: start: 20080312
  2. LIPITOR [Concomitant]
  3. CENTRUM SILVER MULTIVITAMIN [Concomitant]
  4. ASCORBIC ACID [Concomitant]
  5. CALTRATE VIT D [Concomitant]
  6. ASPIRIN [Concomitant]
  7. CLARITIN [Concomitant]

REACTIONS (1)
  - DRUG INEFFECTIVE [None]
